FAERS Safety Report 20490206 (Version 4)
Quarter: 2024Q1

REPORT INFORMATION
  Report Type: Other
  Country: CA (occurrence: CA)
  Receive Date: 20220218
  Receipt Date: 20240124
  Transmission Date: 20240410
  Serious: Yes (Hospitalization, Other)
  Sender: FDA-Public Use
  Company Number: CA-INTERCEPT-PM2022000182

PATIENT
  Age: 56 Year
  Sex: Female

DRUGS (11)
  1. OCALIVA [Suspect]
     Active Substance: OBETICHOLIC ACID
     Indication: Primary biliary cholangitis
     Dosage: 5 MILLIGRAM, 3X/WK
     Route: 048
     Dates: start: 20200508, end: 2020
  2. OCALIVA [Suspect]
     Active Substance: OBETICHOLIC ACID
     Dosage: 5 MILLIGRAM, 4 DAYS A WEEK
     Route: 048
     Dates: start: 2020, end: 2020
  3. OCALIVA [Suspect]
     Active Substance: OBETICHOLIC ACID
     Dosage: 5 MILLIGRAM, 3X/WK
     Route: 048
     Dates: start: 2020
  4. OCALIVA [Suspect]
     Active Substance: OBETICHOLIC ACID
     Dosage: 5 MILLIGRAM, QD
     Route: 048
     Dates: end: 202111
  5. OCALIVA [Suspect]
     Active Substance: OBETICHOLIC ACID
     Dosage: 5 MILLIGRAM, QOD
     Route: 048
  6. OCALIVA [Suspect]
     Active Substance: OBETICHOLIC ACID
     Dosage: 5 MILLIGRAM, QD
     Route: 048
  7. URSODIOL [Concomitant]
     Active Substance: URSODIOL
     Dosage: 750 MG, QD
  8. NOVO-AZATHIOPRINE [Concomitant]
     Dosage: UNK
  9. NOVO-AZATHIOPRINE [Concomitant]
     Dosage: UNK
  10. NOVO-AZATHIOPRINE [Concomitant]
     Dosage: UNK
  11. NOVO-AZATHIOPRINE [Concomitant]
     Dosage: UNK

REACTIONS (8)
  - Anaemia [Recovered/Resolved]
  - Coma [Unknown]
  - Seizure [Recovered/Resolved]
  - Disease recurrence [Recovered/Resolved]
  - Blood pressure abnormal [Unknown]
  - Dyspnoea [Recovered/Resolved]
  - Depression [Unknown]
  - Transfusion [Recovered/Resolved]

NARRATIVE: CASE EVENT DATE: 20211101
